FAERS Safety Report 7704715-9 (Version None)
Quarter: 2011Q3

REPORT INFORMATION
  Report Type: 
  Country: None (occurrence: None)
  Receive Date: 20110823
  Receipt Date: 20110811
  Transmission Date: 20111222
  Serious: Yes (Disabling)
  Sender: FDA-Public Use
  Company Number: PHHY2011DK74468

PATIENT
  Sex: Female

DRUGS (2)
  1. EPIRUBICIN [Suspect]
     Indication: BREAST CANCER FEMALE
     Dosage: UNK UKN, UNK
     Route: 065
     Dates: start: 20091019
  2. CYCLOPHOSPHAMIDE [Concomitant]
     Dosage: UNK UKN, UNK
     Dates: start: 20090928, end: 20091101

REACTIONS (10)
  - NERVE INJURY [None]
  - ARTHRALGIA [None]
  - FATIGUE [None]
  - DIARRHOEA [None]
  - ORAL FUNGAL INFECTION [None]
  - SENSORY DISTURBANCE [None]
  - MYALGIA [None]
  - HYPOAESTHESIA [None]
  - PAIN [None]
  - NAUSEA [None]
